FAERS Safety Report 9405199 (Version 1)
Quarter: 2013Q3

REPORT INFORMATION
  Report Type: Spontaneous
  Country: NO (occurrence: NO)
  Receive Date: 20130717
  Receipt Date: 20130717
  Transmission Date: 20140515
  Serious: Yes (Hospitalization)
  Sender: FDA-Public Use
  Company Number: PHHY2013NO074111

PATIENT
  Age: 86 Year
  Sex: Female

DRUGS (6)
  1. ALENDRONIC ACID [Suspect]
     Indication: OSTEOPOROSIS
     Dosage: 70 MG, QW
     Route: 048
  2. ARICEPT [Concomitant]
     Dosage: 5 MG, UNK
     Route: 048
  3. CALCIGRAN FORTE [Concomitant]
     Route: 048
  4. IMOVANE [Concomitant]
     Dosage: 3.75 MG, QD
     Route: 048
  5. SIMVASTATIN [Concomitant]
     Indication: HYPERCHOLESTEROLAEMIA
     Dosage: 20 MG, QD
     Route: 048
  6. CIPRALEX [Concomitant]
     Dosage: 5 MG, QD
     Route: 048

REACTIONS (1)
  - Osteomyelitis [Recovered/Resolved]
